FAERS Safety Report 20929994 (Version 1)
Quarter: 2022Q2

REPORT INFORMATION
  Report Type: Spontaneous
  Country: CN (occurrence: None)
  Receive Date: 20220608
  Receipt Date: 20220608
  Transmission Date: 20220720
  Serious: Yes (Other)
  Sender: FDA-Public Use
  Company Number: CN-ROCHE-3107423

PATIENT
  Age: 67 Year
  Sex: Female

DRUGS (20)
  1. AVASTIN [Suspect]
     Active Substance: BEVACIZUMAB
     Indication: Adenocarcinoma of colon
     Route: 065
     Dates: start: 20200911, end: 20210219
  2. AVASTIN [Suspect]
     Active Substance: BEVACIZUMAB
     Dosage: FOR 14 CYCLES
     Route: 065
     Dates: start: 20210312, end: 20220125
  3. AVASTIN [Suspect]
     Active Substance: BEVACIZUMAB
     Dosage: D1
     Route: 030
     Dates: start: 20220215
  4. OXALIPLATIN [Concomitant]
     Active Substance: OXALIPLATIN
     Indication: Adenocarcinoma of colon
     Route: 065
     Dates: start: 20200729
  5. OXALIPLATIN [Concomitant]
     Active Substance: OXALIPLATIN
     Route: 065
     Dates: start: 20200729
  6. OXALIPLATIN [Concomitant]
     Active Substance: OXALIPLATIN
     Route: 065
     Dates: start: 20200731
  7. OXALIPLATIN [Concomitant]
     Active Substance: OXALIPLATIN
     Route: 065
     Dates: start: 20200731
  8. OXALIPLATIN [Concomitant]
     Active Substance: OXALIPLATIN
     Route: 065
     Dates: start: 20200804
  9. OXALIPLATIN [Concomitant]
     Active Substance: OXALIPLATIN
     Route: 065
     Dates: start: 20200804
  10. OXALIPLATIN [Concomitant]
     Active Substance: OXALIPLATIN
     Route: 065
     Dates: start: 20200911, end: 20210219
  11. RALTITREXED [Concomitant]
     Active Substance: RALTITREXED
     Indication: Adenocarcinoma of colon
     Route: 065
     Dates: start: 20200729
  12. RALTITREXED [Concomitant]
     Active Substance: RALTITREXED
     Route: 065
     Dates: start: 20200731
  13. RALTITREXED [Concomitant]
     Active Substance: RALTITREXED
     Route: 065
     Dates: start: 20200804
  14. LEUCOVORIN CALCIUM [Concomitant]
     Active Substance: LEUCOVORIN CALCIUM
     Indication: Adenocarcinoma of colon
     Route: 065
     Dates: start: 20200911, end: 20210219
  15. LEUCOVORIN CALCIUM [Concomitant]
     Active Substance: LEUCOVORIN CALCIUM
     Dosage: D1
     Route: 030
     Dates: start: 20220215, end: 20220511
  16. FLUOROURACIL [Concomitant]
     Active Substance: FLUOROURACIL
     Indication: Adenocarcinoma of colon
     Route: 065
     Dates: start: 20200911, end: 20210219
  17. FLUOROURACIL [Concomitant]
     Active Substance: FLUOROURACIL
     Dosage: D1
     Route: 042
     Dates: start: 20220215, end: 20220511
  18. FLUOROURACIL [Concomitant]
     Active Substance: FLUOROURACIL
     Dosage: CONTINUOUS INFUSION  46 HOUR
     Route: 065
     Dates: start: 20220215, end: 20220511
  19. CAPECITABINE [Concomitant]
     Active Substance: CAPECITABINE
     Indication: Adenocarcinoma of colon
     Dosage: FOR 16 CYCLES
     Route: 048
     Dates: start: 20210312, end: 20220125
  20. IRINOTECAN [Concomitant]
     Active Substance: IRINOTECAN
     Indication: Adenocarcinoma of colon
     Dosage: D1
     Route: 030
     Dates: start: 20220215, end: 20220511

REACTIONS (3)
  - Diarrhoea [Unknown]
  - Myelosuppression [Unknown]
  - Gingival bleeding [Unknown]
